FAERS Safety Report 25312858 (Version 2)
Quarter: 2025Q2

REPORT INFORMATION
  Report Type: Spontaneous
  Country: US (occurrence: US)
  Receive Date: 20250514
  Receipt Date: 20250623
  Transmission Date: 20250717
  Serious: No
  Sender: APOTEX
  Company Number: US-APOTEX-2025AP007187

PATIENT

DRUGS (1)
  1. CLOPIDOGREL [Suspect]
     Active Substance: CLOPIDOGREL BISULFATE
     Indication: Cardiac disorder
     Dosage: UNK, QD
     Route: 065

REACTIONS (4)
  - Anxiety [Unknown]
  - Product compounding quality issue [Unknown]
  - Chest pain [Unknown]
  - Drug ineffective [Unknown]
